FAERS Safety Report 8121781-X (Version None)
Quarter: 2012Q1

REPORT INFORMATION
  Report Type: 
  Country: None (occurrence: None)
  Receive Date: 20120208
  Receipt Date: 20120124
  Transmission Date: 20120608
  Serious: Yes (Death, Hospitalization)
  Sender: FDA-Public Use
  Company Number: JP-AMGEN-US269134

PATIENT
  Age: 74 Year
  Sex: Female
  Weight: 34 kg

DRUGS (4)
  1. ENBREL [Suspect]
     Indication: RHEUMATOID ARTHRITIS
     Dosage: 25 MG, QWK
     Route: 058
     Dates: start: 20070109, end: 20080226
  2. PREDNISOLONE [Concomitant]
     Dosage: 5 MG, QD
     Route: 048
     Dates: start: 20020801
  3. ETODOLAC [Concomitant]
     Dosage: 1 UNK, QD
     Route: 048
     Dates: start: 20071121
  4. DICLOFENAC SODIUM [Concomitant]
     Dosage: 37.5 MG, QD
     Route: 048
     Dates: start: 20030126, end: 20071120

REACTIONS (5)
  - INTERSTITIAL LUNG DISEASE [None]
  - RESPIRATORY FAILURE [None]
  - STOMATITIS [None]
  - NAUSEA [None]
  - ASTHENIA [None]
